FAERS Safety Report 12131724 (Version 1)
Quarter: 2016Q1

REPORT INFORMATION
  Report Type: Spontaneous
  Country: US (occurrence: None)
  Receive Date: 20160229
  Receipt Date: 20160229
  Transmission Date: 20160526
  Serious: Yes (Hospitalization)
  Sender: FDA-Public Use
  Company Number: None

PATIENT
  Age: 60 Year
  Sex: Male
  Weight: 75 kg

DRUGS (1)
  1. GEMCITABINE HYDROCHLORIDE. [Suspect]
     Active Substance: GEMCITABINE HYDROCHLORIDE
     Dates: end: 20160122

REACTIONS (9)
  - Mental status changes [None]
  - Hypokalaemia [None]
  - Anaemia [None]
  - Pleural effusion [None]
  - Hypoalbuminaemia [None]
  - Asthenia [None]
  - Hyperammonaemia [None]
  - Ascites [None]
  - Colitis [None]

NARRATIVE: CASE EVENT DATE: 20160128
